FAERS Safety Report 24078256 (Version 1)
Quarter: 2024Q3

REPORT INFORMATION
  Report Type: Spontaneous
  Country: DE (occurrence: DE)
  Receive Date: 20240711
  Receipt Date: 20240711
  Transmission Date: 20241017
  Serious: Yes (Hospitalization, Other)
  Sender: PFIZER
  Company Number: DE-SA-SAC20240630000033

PATIENT
  Age: 5 Year
  Sex: Male

DRUGS (14)
  1. BESPONSA [Suspect]
     Active Substance: INOTUZUMAB OZOGAMICIN
     Indication: B-cell prolymphocytic leukaemia
     Dosage: FREQ:{TOTAL};0.41 MG, 1X
     Route: 042
     Dates: start: 20231107, end: 20231123
  2. METHOTREXATE SODIUM [Suspect]
     Active Substance: METHOTREXATE SODIUM
     Dosage: FREQ:{TOTAL};12 MG, 1X
     Dates: start: 20231205, end: 20231205
  3. METHOTREXATE SODIUM [Suspect]
     Active Substance: METHOTREXATE SODIUM
     Dosage: 810 MG INFUSION OVER 36 HOURS
     Dates: start: 20231206
  4. PREDNISOLONE [Suspect]
     Active Substance: PREDNISOLONE
     Indication: B-cell prolymphocytic leukaemia
     Dosage: FREQ:{TOTAL};10 MG, 1X
     Dates: start: 20231205, end: 20231205
  5. VINCRISTINE SULFATE [Suspect]
     Active Substance: VINCRISTINE SULFATE
     Indication: B-cell prolymphocytic leukaemia
     Dosage: 1.22 ON DAY 1 AND DAY 6
     Dates: start: 20231206
  6. DEXAMETHASONE ACETATE [Suspect]
     Active Substance: DEXAMETHASONE ACETATE
     Indication: B-cell prolymphocytic leukaemia
     Dosage: 2 MG, 2X/DAY
     Dates: start: 20231205
  7. PEGASPARGASE [Suspect]
     Active Substance: PEGASPARGASE
     Indication: B-cell prolymphocytic leukaemia
     Dosage: FREQ:{TOTAL};810 IU, 1X
     Dates: start: 20231211
  8. CYCLOPHOSPHAMIDE [Suspect]
     Active Substance: CYCLOPHOSPHAMIDE
     Indication: B-cell prolymphocytic leukaemia
     Dosage: 162 MG, 5 DOSES ON DAY 2, DAY 4 OF PROTOCOL
     Dates: start: 20231207
  9. CYTARABINE [Suspect]
     Active Substance: CYTARABINE
     Indication: B-cell prolymphocytic leukaemia
     Dosage: 1620 MG, 2X/DAY
     Dates: start: 20231210
  10. CYTARABINE [Suspect]
     Active Substance: CYTARABINE
     Dosage: FREQ:{TOTAL};30 MG, 1X
     Dates: start: 20231205, end: 20231205
  11. AMBISOME [Concomitant]
     Active Substance: AMPHOTERICIN B
     Indication: Immunosuppression
     Dosage: UNK
     Dates: start: 20231102
  12. METHOTREXATE SODIUM [Concomitant]
     Active Substance: METHOTREXATE SODIUM
     Dosage: UNK
  13. COTRIMOXAZOLE [Concomitant]
     Active Substance: SULFAMETHOXAZOLE\TRIMETHOPRIM
     Dosage: UNK
  14. NOVALGIN (METAMIZOLE SODIUM) [Concomitant]
     Active Substance: METAMIZOLE SODIUM
     Dosage: UNK
     Route: 048
     Dates: start: 20231208

REACTIONS (4)
  - Mucosal inflammation [Recovered/Resolved]
  - Pyrexia [Recovered/Resolved]
  - Myelosuppression [Recovered/Resolved]
  - Off label use [Unknown]

NARRATIVE: CASE EVENT DATE: 20231107
